FAERS Safety Report 21265807 (Version 1)
Quarter: 2022Q3

REPORT INFORMATION
  Report Type: Spontaneous
  Country: US (occurrence: US)
  Receive Date: 20220829
  Receipt Date: 20220829
  Transmission Date: 20221027
  Serious: Yes (Other)
  Sender: FDA-Public Use
  Company Number: US-MYLANLABS-2022M1089387

PATIENT
  Sex: Male
  Weight: 81.64 kg

DRUGS (2)
  1. MIRTAZAPINE [Suspect]
     Active Substance: MIRTAZAPINE
     Indication: Sleep disorder
     Dosage: 7.5 MILLIGRAM, QD
     Route: 048
     Dates: start: 202206
  2. VITAMIN C [Concomitant]
     Active Substance: ASCORBIC ACID
     Indication: Lyme disease
     Dosage: UNK
     Route: 042

REACTIONS (5)
  - Hallucination, auditory [Unknown]
  - Fear of death [Unknown]
  - Feeling hot [Unknown]
  - Insomnia [Unknown]
  - Withdrawal syndrome [Not Recovered/Not Resolved]
